FAERS Safety Report 7716810-9 (Version None)
Quarter: 2011Q3

REPORT INFORMATION
  Report Type: 
  Country: None (occurrence: None)
  Receive Date: 20110829
  Receipt Date: 20110816
  Transmission Date: 20111222
  Serious: Yes (Life-Threatening, Hospitalization)
  Sender: FDA-Public Use
  Company Number: US-MYLANLABS-2011S1017486

PATIENT
  Age: 62 Year
  Sex: Male

DRUGS (1)
  1. METFORMIN HYDROCHLORIDE [Suspect]
     Route: 065

REACTIONS (4)
  - HYPOTHERMIA [None]
  - ABDOMINAL PAIN [None]
  - BLOOD PRESSURE INCREASED [None]
  - METABOLIC ACIDOSIS [None]
